FAERS Safety Report 7283092-4 (Version None)
Quarter: 2011Q1

REPORT INFORMATION
  Report Type: 
  Country: None (occurrence: None)
  Receive Date: 20110209
  Receipt Date: 20110203
  Transmission Date: 20110831
  Serious: Yes (Life-Threatening, Hospitalization)
  Sender: FDA-Public Use
  Company Number: US-ROCHE-749684

PATIENT
  Sex: Male
  Weight: 66.5 kg

DRUGS (13)
  1. ERLOTINIB [Suspect]
     Dosage: LAST DOSE PRIOR TO SAE: 17 NOVEMBER 2010
     Route: 048
     Dates: start: 20101110, end: 20101117
  2. OMEPRAZOLE [Concomitant]
     Dosage: FREQUENCY :HS
  3. FERROUS SULFATE TAB [Concomitant]
     Dosage: FREQUENCY:DAILY
  4. DOCETAXEL [Suspect]
     Dosage: LAST DOSE PRIOR TO SAE: 20 OCTOBER 2010
     Route: 042
     Dates: start: 20100818, end: 20101020
  5. VICODIN [Concomitant]
     Dosage: DOSE 5/500, FREQUENCY PRN
  6. BEVACIZUMAB [Suspect]
     Dosage: MAINTAINENCE 2, MOST RECENT DOSE:01 DECEMBER 2010.
     Route: 042
     Dates: start: 20100818
  7. LOPRESSOR [Concomitant]
  8. COMBIVENT [Concomitant]
     Dosage: DOSE:2 PUFFS
  9. VERAMYST [Concomitant]
  10. MULTI-VITAMIN [Concomitant]
  11. CARBOPLATIN [Suspect]
     Dosage: LAST DOSE PRIOR TO SAE: 20 OCTOBER 2010
     Route: 042
     Dates: start: 20100818, end: 20101020
  12. MEGACE [Concomitant]
  13. MIRTAZAPINE [Concomitant]
     Dosage: FREQUENCY:HS

REACTIONS (2)
  - PNEUMOTHORAX [None]
  - BRONCHIAL FISTULA [None]
